FAERS Safety Report 7364357-4 (Version None)
Quarter: 2011Q1

REPORT INFORMATION
  Report Type: 
  Country: None (occurrence: None)
  Receive Date: 20110321
  Receipt Date: 20110308
  Transmission Date: 20110831
  Serious: Yes (Hospitalization)
  Sender: FDA-Public Use
  Company Number: US-JNJFOC-20101203757

PATIENT
  Sex: Male

DRUGS (6)
  1. PLAVIX [Concomitant]
  2. REMICADE [Suspect]
     Indication: PSORIATIC ARTHROPATHY
     Route: 042
  3. METHOTREXATE [Concomitant]
     Indication: PRODUCT USED FOR UNKNOWN INDICATION
  4. COUMADIN [Concomitant]
     Indication: ATRIAL FIBRILLATION
  5. REMICADE [Suspect]
     Route: 042
  6. PREDNISONE [Concomitant]
     Indication: PRODUCT USED FOR UNKNOWN INDICATION

REACTIONS (5)
  - CELLULITIS [None]
  - MYOCARDIAL INFARCTION [None]
  - STAPHYLOCOCCAL INFECTION [None]
  - INTRA-ABDOMINAL HAEMATOMA [None]
  - SKIN ULCER [None]
